FAERS Safety Report 18843046 (Version 2)
Quarter: 2021Q1

REPORT INFORMATION
  Report Type: Report from Study
  Country: US (occurrence: US)
  Receive Date: 20210203
  Receipt Date: 20210217
  Transmission Date: 20210419
  Serious: No
  Sender: FDA-Public Use
  Company Number: US-JAZZ-2021-US-001420

PATIENT
  Sex: Male

DRUGS (8)
  1. XYREM [Suspect]
     Active Substance: SODIUM OXYBATE
     Dosage: DOSE ADJUSTMENT
     Route: 048
     Dates: start: 200311, end: 200805
  2. XYREM [Suspect]
     Active Substance: SODIUM OXYBATE
     Dosage: 5 GRAM, SECOND DOSE
     Route: 048
     Dates: start: 200805, end: 2008
  3. XYREM [Suspect]
     Active Substance: SODIUM OXYBATE
     Dosage: 4.5 GRAM, BID
     Route: 048
     Dates: start: 201108
  4. XYREM [Suspect]
     Active Substance: SODIUM OXYBATE
     Indication: FIBROMYALGIA
     Dosage: 2.25 GRAM, BID
     Route: 048
     Dates: start: 200310, end: 200311
  5. XYREM [Suspect]
     Active Substance: SODIUM OXYBATE
     Dosage: 9 GRAM, FIRST DOSE
     Route: 048
     Dates: start: 200805, end: 2008
  6. XYREM [Suspect]
     Active Substance: SODIUM OXYBATE
     Dosage: 9 GRAM, FIRST DOSE
     Route: 048
     Dates: start: 200811, end: 201004
  7. XYREM [Suspect]
     Active Substance: SODIUM OXYBATE
     Dosage: 5 GRAM, SECOND DOSE
     Route: 048
     Dates: start: 200811, end: 201004
  8. XYREM [Suspect]
     Active Substance: SODIUM OXYBATE
     Dosage: DOSE ADJUSTMENT
     Route: 048
     Dates: start: 201006, end: 201108

REACTIONS (2)
  - Benign prostatic hyperplasia [Recovering/Resolving]
  - Pruritus [Not Recovered/Not Resolved]
